FAERS Safety Report 9513845 (Version 5)
Quarter: 2014Q1

REPORT INFORMATION
  Report Type: Report from Study
  Country: US (occurrence: US)
  Receive Date: 20130910
  Receipt Date: 20140228
  Transmission Date: 20141002
  Serious: Yes (Hospitalization, Other)
  Sender: FDA-Public Use
  Company Number: US-ACTELION-A-US2013-81859

PATIENT
  Age: 36 Year
  Sex: Female

DRUGS (6)
  1. VENTAVIS [Suspect]
     Indication: PULMONARY ARTERIAL HYPERTENSION
     Dosage: 5 MCG, UNK
     Route: 055
     Dates: start: 20130329
  2. VENTAVIS [Suspect]
     Dosage: 10
     Route: 055
     Dates: start: 20130329
  3. REMODULIN [Suspect]
     Dosage: UNK
     Route: 058
     Dates: end: 20130329
  4. LETAIRIS [Concomitant]
  5. METOLAZONE [Concomitant]
  6. FUROSEMIDE [Concomitant]

REACTIONS (14)
  - Syncope [Recovering/Resolving]
  - Blood potassium decreased [Recovering/Resolving]
  - Myalgia [Recovering/Resolving]
  - Chest pain [Recovering/Resolving]
  - Dyspnoea [Recovering/Resolving]
  - Ovarian cyst [Recovered/Resolved]
  - Genital disorder female [Recovered/Resolved]
  - Urinary incontinence [Unknown]
  - Pallor [Recovered/Resolved]
  - Fall [Unknown]
  - Presyncope [Recovered/Resolved]
  - Cyanosis [Recovered/Resolved]
  - Malaise [Unknown]
  - Vomiting [Unknown]
